FAERS Safety Report 8452248 (Version 4)
Quarter: 2013Q2

REPORT INFORMATION
  Report Type: Spontaneous
  Country: US (occurrence: US)
  Receive Date: 20120311
  Receipt Date: 20130627
  Transmission Date: 20140414
  Serious: Yes (Other)
  Sender: FDA-Public Use
  Company Number: US-ASTRAZENECA-2012SE10281

PATIENT
  Age: 65 Year
  Sex: Male
  Weight: 113.4 kg

DRUGS (16)
  1. LISINOPRIL [Suspect]
     Route: 048
  2. BRILINTA [Suspect]
     Indication: CORONARY ARTERIAL STENT INSERTION
     Route: 048
     Dates: start: 20130127
  3. COREG [Concomitant]
  4. BABY ASPIRIN [Concomitant]
     Dosage: QD
     Dates: start: 20120127
  5. SPIRONOLACTONE [Concomitant]
  6. TYLENOL 3 [Concomitant]
     Indication: NECK PAIN
     Dosage: QID
  7. LORAZEPAM [Concomitant]
  8. SOMA [Concomitant]
  9. PREVACID [Concomitant]
  10. DOCUSATE SODIUM [Concomitant]
     Indication: FAECES HARD
     Dosage: TID
  11. CHLORTAB [Concomitant]
     Dosage: QID
  12. SIMETHICONE [Concomitant]
     Indication: FLATULENCE
  13. GUANETHAPHEN [Concomitant]
     Indication: ILL-DEFINED DISORDER
  14. FOLIC ACID [Concomitant]
  15. VITAMIN B12 [Concomitant]
  16. MULTIVITAMINS [Concomitant]
     Dosage: DAILY

REACTIONS (6)
  - Myocardial infarction [Unknown]
  - Dyspnoea [Unknown]
  - Activities of daily living impaired [Unknown]
  - Fatigue [Unknown]
  - Miliaria [Not Recovered/Not Resolved]
  - Epistaxis [Unknown]
